FAERS Safety Report 9657669 (Version 6)
Quarter: 2013Q4

REPORT INFORMATION
  Report Type: Spontaneous
  Country: US (occurrence: US)
  Receive Date: 20131030
  Receipt Date: 20131205
  Transmission Date: 20140711
  Serious: Yes (Hospitalization, Other)
  Sender: FDA-Public Use
  Company Number: US-PFIZER INC-2013306123

PATIENT
  Age: 61 Year
  Sex: Female
  Weight: 77.1 kg

DRUGS (7)
  1. CELEBREX [Suspect]
     Indication: PAIN
     Dosage: UNK (200MG OR 400 MG)
  2. CHANTIX [Suspect]
     Indication: SMOKING CESSATION THERAPY
     Dosage: UNK
     Dates: start: 201303
  3. HYDROCODONE [Suspect]
     Dosage: UNK
  4. LASIX [Suspect]
     Dosage: UNK
  5. PERCOCET [Suspect]
     Dosage: UNK
  6. DILTIAZEM HYDROCHLORIDE [Concomitant]
     Indication: HYPERTENSION
     Dosage: UNK
  7. LOSARTAN POTASSIUM [Concomitant]
     Indication: HYPERTENSION
     Dosage: 100 MG, UNK

REACTIONS (16)
  - Intervertebral disc disorder [Unknown]
  - Chronic obstructive pulmonary disease [Unknown]
  - Pericardial effusion [Unknown]
  - Pneumonia [Unknown]
  - Gallbladder disorder [Unknown]
  - Back pain [Unknown]
  - Gastrooesophageal reflux disease [Unknown]
  - Blood count abnormal [Unknown]
  - Mineral deficiency [Unknown]
  - Blood magnesium decreased [Unknown]
  - Ulcer [Unknown]
  - Stress [Unknown]
  - Weight increased [Unknown]
  - Drug intolerance [Unknown]
  - Bronchitis [Unknown]
  - Drug ineffective [Unknown]
